FAERS Safety Report 15283299 (Version 1)
Quarter: 2018Q3

REPORT INFORMATION
  Report Type: Report from Study
  Country: US (occurrence: US)
  Receive Date: 20180816
  Receipt Date: 20180816
  Transmission Date: 20181010
  Serious: Yes (Hospitalization, Other)
  Sender: FDA-Public Use
  Company Number: US-EMD SERONO-E2B_90055280

PATIENT
  Sex: Male

DRUGS (1)
  1. REBIF [Suspect]
     Active Substance: INTERFERON BETA-1A
     Indication: MULTIPLE SCLEROSIS
     Route: 058
     Dates: start: 20170410

REACTIONS (5)
  - Injection site bruising [Not Recovered/Not Resolved]
  - Dehydration [Recovered/Resolved]
  - Blood uric acid increased [Recovered/Resolved]
  - Renal disorder [Recovered/Resolved]
  - Injection site erythema [Not Recovered/Not Resolved]
